FAERS Safety Report 8758959 (Version 1)
Quarter: 2012Q4

REPORT INFORMATION
  Report Type: 
  Country: US (occurrence: US)
  Receive Date: 20120829
  Receipt Date: 20120829
  Transmission Date: 20130627
  Serious: No
  Sender: FDA-Public Use
  Company Number: US-009507513-1208USA002407

PATIENT

DRUGS (1)
  1. NEXPLANON [Suspect]
     Indication: CONTRACEPTION

REACTIONS (2)
  - Device breakage [Unknown]
  - No adverse event [Unknown]
